FAERS Safety Report 4426376-7 (Version None)
Quarter: 2004Q3

REPORT INFORMATION
  Report Type: 
  Country: None (occurrence: None)
  Receive Date: 20040811
  Receipt Date: 20040723
  Transmission Date: 20050211
  Serious: Yes (Other)
  Sender: FDA-Public Use
  Company Number: JP_040703970

PATIENT
  Age: 69 Year
  Sex: Male
  Weight: 55 kg

DRUGS (5)
  1. ONCOVIN [Suspect]
     Indication: T-CELL LYMPHOMA
     Dates: start: 20030129
  2. METHOTREXATE [Concomitant]
  3. CYCLOPHOSPHAMIDE [Concomitant]
  4. PIRARUBICIN [Concomitant]
  5. PREDNISOLONE [Concomitant]

REACTIONS (11)
  - ACTIVATED PARTIAL THROMBOPLASTIN TIME PROLONGED [None]
  - ANAEMIA [None]
  - BLOOD FIBRINOGEN DECREASED [None]
  - CATHETER RELATED COMPLICATION [None]
  - FIBRIN D DIMER INCREASED [None]
  - HYPOPROTEINAEMIA [None]
  - INTERNATIONAL NORMALISED RATIO INCREASED [None]
  - PROTHROMBIN TIME PROLONGED [None]
  - PULMONARY EMBOLISM [None]
  - THROMBIN-ANTITHROMBIN III COMPLEX INCREASED [None]
  - VENA CAVA EMBOLISM [None]
